FAERS Safety Report 6107163-0 (Version None)
Quarter: 2009Q1

REPORT INFORMATION
  Report Type: 
  Country: None (occurrence: None)
  Receive Date: 20090305
  Receipt Date: 20090305
  Transmission Date: 20090719
  Serious: Yes (Other)
  Sender: FDA-Public Use
  Company Number: None

PATIENT
  Sex: Male
  Weight: 78.0187 kg

DRUGS (2)
  1. CIPROFLOXACIN HCL [Suspect]
     Indication: ANTIBIOTIC PROPHYLAXIS
     Dosage: 1 AM 1 PM
     Dates: start: 20090202
  2. CIPROFLOXACIN HCL [Suspect]
     Indication: ANTIBIOTIC PROPHYLAXIS
     Dosage: 1 AM 1 PM
     Dates: start: 20081219

REACTIONS (6)
  - COUGH [None]
  - DIARRHOEA [None]
  - FATIGUE [None]
  - ILL-DEFINED DISORDER [None]
  - MUSCULAR WEAKNESS [None]
  - TREMOR [None]
